FAERS Safety Report 6269958-2 (Version None)
Quarter: 2009Q3

REPORT INFORMATION
  Report Type: 
  Country: None (occurrence: None)
  Receive Date: 20090716
  Receipt Date: 20090701
  Transmission Date: 20100115
  Serious: Yes (Death, Hospitalization)
  Sender: FDA-Public Use
  Company Number: FR-AVENTIS-200915921GDDC

PATIENT
  Age: 45 Year
  Sex: Male
  Weight: 63 kg

DRUGS (16)
  1. PLACEBO [Suspect]
     Route: 042
     Dates: start: 20090526, end: 20090526
  2. DOCETAXEL [Suspect]
     Route: 042
     Dates: start: 20090526, end: 20090526
  3. DAFALGAN                           /00020001/ [Concomitant]
     Dates: start: 20090403
  4. SKENAN [Concomitant]
     Dates: start: 20090429
  5. ACTISKENAN [Concomitant]
     Dates: start: 20090429
  6. XANAX [Concomitant]
     Dates: start: 20090403
  7. GAVISCON [Concomitant]
     Dates: start: 20090403
  8. PRIMPERAN                          /00041901/ [Concomitant]
  9. SERETIDE [Concomitant]
     Dates: start: 20090427
  10. FORLAX [Concomitant]
     Dates: start: 20090403
  11. SOLUPRED                           /00016201/ [Concomitant]
  12. ZOPHREN                            /00955301/ [Concomitant]
  13. BI PROFENID [Concomitant]
     Dates: start: 20090524
  14. SPECIAFOLDINE [Concomitant]
     Dates: start: 20090403
  15. KETOPROFEN [Concomitant]
     Dates: start: 20090518, end: 20090523
  16. CORTICOSTEROIDS [Concomitant]

REACTIONS (1)
  - PLEURAL EFFUSION [None]
